FAERS Safety Report 9408348 (Version 1)
Quarter: 2013Q3

REPORT INFORMATION
  Report Type: Spontaneous
  Country: NL (occurrence: NL)
  Receive Date: 20130716
  Receipt Date: 20130716
  Transmission Date: 20140515
  Serious: Yes (Hospitalization)
  Sender: FDA-Public Use
  Company Number: 114-50794-13052254

PATIENT
  Age: 75 Year
  Sex: Female
  Weight: 68 kg

DRUGS (10)
  1. VIDAZA [Suspect]
     Indication: ACUTE MYELOID LEUKAEMIA
     Route: 058
     Dates: start: 20130422
  2. RED BLOOD CELLS (RED BLOOD CELLS) [Concomitant]
  3. PANTOPRAZOL (PANTOPRAZOLE) [Concomitant]
  4. METOPROLOL (METOPROLOL) [Concomitant]
  5. LOSARTAN POTASSIUM (LOSARTAN POTASSIUM) [Concomitant]
  6. FOLIC ACID (FOLIC ACID) [Concomitant]
  7. CARBASALATE CALCIUM (CARBASALATE CALCIUM) [Concomitant]
  8. NOVORAPID (INSULIN ASPART) [Concomitant]
  9. LEVEMIR (INSULIN DETEMIR) [Concomitant]
  10. TRAMADOL (TRAMADOL) [Concomitant]

REACTIONS (9)
  - Humerus fracture [None]
  - Fall [None]
  - Upper limb fracture [None]
  - Contusion [None]
  - Nausea [None]
  - Vomiting [None]
  - Constipation [None]
  - Erythema [None]
  - Dizziness [None]
